FAERS Safety Report 4659675-4 (Version None)
Quarter: 2005Q2

REPORT INFORMATION
  Report Type: 
  Country: None (occurrence: None)
  Receive Date: 20050420
  Receipt Date: 20050302
  Transmission Date: 20051028
  Serious: No
  Sender: FDA-Public Use
  Company Number: PHEH2005US02318

PATIENT
  Age: 53 Year
  Sex: Male

DRUGS (2)
  1. ENABLEX [Suspect]
     Indication: URINARY INCONTINENCE
     Dosage: 7.5MG TWO TABLETS QD SKIPS EVERY FOURTH DAY, ORAL
     Route: 048
     Dates: start: 20050221
  2. METFORMIN HCL [Concomitant]

REACTIONS (3)
  - CONSTIPATION [None]
  - DISTURBANCE IN ATTENTION [None]
  - DRY MOUTH [None]
